FAERS Safety Report 15256156 (Version 3)
Quarter: 2018Q3

REPORT INFORMATION
  Report Type: Report from Study
  Country: IT (occurrence: IT)
  Receive Date: 20180808
  Receipt Date: 20180828
  Transmission Date: 20181010
  Serious: Yes (Hospitalization, Congenital Anomaly, Other)
  Sender: FDA-Public Use
  Company Number: IT-ALLERGAN-1839033US

PATIENT
  Age: 39 Week
  Sex: Male

DRUGS (3)
  1. ESCITALOPRAM OXALATE UNK [Suspect]
     Active Substance: ESCITALOPRAM OXALATE
     Indication: MATERNAL EXPOSURE TIMING UNSPECIFIED
     Dosage: UNK UNK, UNKNOWN
     Route: 064
  2. CARBOLITHIUM [Suspect]
     Active Substance: LITHIUM CARBONATE
     Indication: MATERNAL EXPOSURE TIMING UNSPECIFIED
     Dosage: 750 MG, DAILY
     Route: 064
  3. LORAZEPAM. [Concomitant]
     Active Substance: LORAZEPAM
     Indication: MATERNAL EXPOSURE TIMING UNSPECIFIED
     Dosage: UNK UNK, UNKNOWN
     Route: 064

REACTIONS (2)
  - Hypoplastic left heart syndrome [Recovered/Resolved]
  - Foetal exposure during pregnancy [Unknown]
